FAERS Safety Report 6209011-7 (Version None)
Quarter: 2009Q2

REPORT INFORMATION
  Report Type: 
  Country: None (occurrence: None)
  Receive Date: 20090529
  Receipt Date: 20090522
  Transmission Date: 20091009
  Serious: Yes (Other)
  Sender: FDA-Public Use
  Company Number: PHHY2009JP19963

PATIENT
  Age: 79 Year
  Sex: Male

DRUGS (5)
  1. VOLTAREN [Suspect]
     Dosage: UNK
     Route: 054
  2. BLOPRESS [Suspect]
  3. ALDACTONE [Concomitant]
     Dosage: UNK
  4. LASIX [Concomitant]
     Dosage: UNK
  5. LANIRAPID [Concomitant]
     Dosage: UNK

REACTIONS (1)
  - SHOCK [None]
